FAERS Safety Report 12945783 (Version 3)
Quarter: 2017Q1

REPORT INFORMATION
  Report Type: Report from Study
  Country: US (occurrence: US)
  Receive Date: 20161116
  Receipt Date: 20170127
  Transmission Date: 20170428
  Serious: Yes (Death, Other)
  Sender: FDA-Public Use
  Company Number: US-009507513-1611USA003171

PATIENT
  Sex: Female

DRUGS (1)
  1. KEYTRUDA [Suspect]
     Active Substance: PEMBROLIZUMAB
     Indication: RETROPERITONEAL CANCER
     Dosage: 169 MG, ONCE EVERY THREE WEEKS
     Route: 042
     Dates: start: 2016, end: 2016

REACTIONS (3)
  - Death [Fatal]
  - Product use issue [Unknown]
  - Adverse event [Not Recovered/Not Resolved]

NARRATIVE: CASE EVENT DATE: 2016
